FAERS Safety Report 15780583 (Version 2)
Quarter: 2019Q1

REPORT INFORMATION
  Report Type: Spontaneous
  Country: US (occurrence: US)
  Receive Date: 20190102
  Receipt Date: 20190118
  Transmission Date: 20190417
  Serious: No
  Sender: FDA-Public Use
  Company Number: US-BAUSCH-BL-2018-035664

PATIENT
  Age: 61 Year
  Sex: Female
  Weight: 59.93 kg

DRUGS (6)
  1. GOCOVRI [Suspect]
     Active Substance: AMANTADINE
     Dosage: AT BED TIME
     Route: 048
     Dates: start: 201811, end: 20181203
  2. CARBIDOPA/LEVODOPA [Suspect]
     Active Substance: CARBIDOPA\LEVODOPA
     Indication: PRODUCT USED FOR UNKNOWN INDICATION
     Route: 065
  3. GOCOVRI [Suspect]
     Active Substance: AMANTADINE
     Indication: DYSKINESIA
     Dosage: AT BED TIME
     Route: 048
     Dates: start: 20181115, end: 20181121
  4. GOCOVRI [Suspect]
     Active Substance: AMANTADINE
     Dosage: AT BED TIME
     Route: 048
     Dates: start: 20181213
  5. GOCOVRI [Suspect]
     Active Substance: AMANTADINE
     Dosage: AT BED TIME
     Route: 048
     Dates: start: 20181122, end: 201811
  6. GOCOVRI [Suspect]
     Active Substance: AMANTADINE
     Dosage: AT BED TIME
     Route: 048
     Dates: start: 20181206, end: 20181212

REACTIONS (5)
  - Tearfulness [Not Recovered/Not Resolved]
  - Anxiety [Not Recovered/Not Resolved]
  - Bradyphrenia [Not Recovered/Not Resolved]
  - Dyspnoea at rest [Not Recovered/Not Resolved]
  - Asthenia [Not Recovered/Not Resolved]

NARRATIVE: CASE EVENT DATE: 201811
